FAERS Safety Report 19886400 (Version 1)
Quarter: 2021Q3

REPORT INFORMATION
  Report Type: Spontaneous
  Country: US (occurrence: US)
  Receive Date: 20210927
  Receipt Date: 20210927
  Transmission Date: 20211014
  Serious: Yes (Hospitalization, Other)
  Sender: FDA-Public Use
  Company Number: US-PFIZER INC-202101225975

PATIENT
  Age: 70 Year
  Sex: Female
  Weight: 84.82 kg

DRUGS (3)
  1. RYBELSUS [Concomitant]
     Active Substance: SEMAGLUTIDE
     Indication: DIABETES MELLITUS
     Dosage: 14 MG, 1X/DAY
  2. GLIPIZIDE. [Concomitant]
     Active Substance: GLIPIZIDE
     Indication: DIABETES MELLITUS
     Dosage: 10 MG, 2X/DAY
  3. IBRANCE [Suspect]
     Active Substance: PALBOCICLIB
     Dosage: UNK MG

REACTIONS (14)
  - Pneumonia [Unknown]
  - Stomatitis [Unknown]
  - Infection [Unknown]
  - Dyspnoea [Unknown]
  - Fatigue [Unknown]
  - Product dose omission issue [Unknown]
  - Nausea [Unknown]
  - Hair texture abnormal [Unknown]
  - Diarrhoea [Recovered/Resolved]
  - Alopecia [Recovering/Resolving]
  - Lung disorder [Unknown]
  - Vomiting [Unknown]
  - Decreased appetite [Unknown]
  - Rash [Unknown]
